FAERS Safety Report 19264271 (Version 1)
Quarter: 2021Q2

REPORT INFORMATION
  Report Type: Spontaneous
  Country: GB (occurrence: GB)
  Receive Date: 20210517
  Receipt Date: 20210517
  Transmission Date: 20210717
  Serious: Yes (Death, Hospitalization, Other)
  Sender: FDA-Public Use
  Company Number: GB-SA-2021SA159032

PATIENT
  Age: 35 Year
  Sex: Male

DRUGS (2)
  1. CABLIVI [Suspect]
     Active Substance: CAPLACIZUMAB-YHDP
     Dosage: UNK
  2. CABLIVI [Suspect]
     Active Substance: CAPLACIZUMAB-YHDP
     Indication: THROMBOTIC THROMBOCYTOPENIC PURPURA
     Dosage: UNK

REACTIONS (7)
  - Haemorrhage intracranial [Fatal]
  - Epistaxis [Fatal]
  - Somnolence [Fatal]
  - Cerebral infarction [Fatal]
  - Subarachnoid haemorrhage [Fatal]
  - Agitation [Fatal]
  - Condition aggravated [Fatal]
